FAERS Safety Report 13002362 (Version 1)
Quarter: 2016Q4

REPORT INFORMATION
  Report Type: Other
  Country: GB (occurrence: GB)
  Receive Date: 20161206
  Receipt Date: 20161206
  Transmission Date: 20170207
  Serious: Yes (Other)
  Sender: FDA-Public Use
  Company Number: GB-PERRIGO-16GB022340

PATIENT

DRUGS (1)
  1. IBUPROFEN. [Suspect]
     Active Substance: IBUPROFEN
     Indication: TEETHING
     Dosage: 2.5ML / 50MG
     Route: 048
     Dates: start: 20161121, end: 20161121

REACTIONS (2)
  - Throat irritation [Recovering/Resolving]
  - Crying [Recovering/Resolving]
